FAERS Safety Report 16637454 (Version 1)
Quarter: 2019Q3

REPORT INFORMATION
  Report Type: Spontaneous
  Country: US (occurrence: US)
  Receive Date: 20190726
  Receipt Date: 20190726
  Transmission Date: 20191004
  Serious: Yes (Disabling)
  Sender: FDA-Public Use
  Company Number: None

PATIENT
  Age: 22 Year
  Sex: Male
  Weight: 81 kg

DRUGS (1)
  1. FLONASE [Suspect]
     Active Substance: FLUTICASONE PROPIONATE
     Indication: SEASONAL ALLERGY
     Dosage: ?          QUANTITY:1 SPRAY(S);?
     Route: 045
     Dates: start: 20190527, end: 20190722

REACTIONS (2)
  - Personality disorder [None]
  - Anxiety [None]

NARRATIVE: CASE EVENT DATE: 20190527
